FAERS Safety Report 14594609 (Version 1)
Quarter: 2018Q1

REPORT INFORMATION
  Report Type: Spontaneous
  Country: DE (occurrence: DE)
  Receive Date: 20180302
  Receipt Date: 20180302
  Transmission Date: 20180509
  Serious: Yes (Other)
  Sender: FDA-Public Use
  Company Number: DE-TEVA-2018-DE-861670

PATIENT
  Age: 21 Year
  Sex: Female

DRUGS (3)
  1. CLOZAPIN [Suspect]
     Active Substance: CLOZAPINE
     Dosage: 0-250 MG/ DAY - UNTIL FURTHER NOTICE
     Route: 048
     Dates: start: 20160805
  2. SERTRALINE [Concomitant]
     Active Substance: SERTRALINE HYDROCHLORIDE
     Dosage: UNTIL FURTHER NOTICE
     Route: 048
     Dates: start: 20160101
  3. NEUROCIL (LEVOMEPROMAZINE) [Concomitant]
     Active Substance: LEVOMEPROMAZINE
     Dosage: UNTIL FURTHER NOTICE
     Route: 048
     Dates: start: 20150601

REACTIONS (3)
  - Increased appetite [Not Recovered/Not Resolved]
  - Weight increased [Not Recovered/Not Resolved]
  - Appetite disorder [Not Recovered/Not Resolved]

NARRATIVE: CASE EVENT DATE: 20170415
